FAERS Safety Report 20740344 (Version 1)
Quarter: 2022Q2

REPORT INFORMATION
  Report Type: Spontaneous
  Country: CA (occurrence: CA)
  Receive Date: 20220422
  Receipt Date: 20220422
  Transmission Date: 20220720
  Serious: Yes (Other)
  Sender: FDA-Public Use
  Company Number: CA-JNJFOC-20220440572

PATIENT

DRUGS (3)
  1. IBUPROFEN [Suspect]
     Active Substance: IBUPROFEN
     Indication: Patent ductus arteriosus
     Route: 048
  2. IBUPROFEN [Suspect]
     Active Substance: IBUPROFEN
     Route: 048
  3. ACETAMINOPHEN [Suspect]
     Active Substance: ACETAMINOPHEN
     Indication: Patent ductus arteriosus
     Dosage: 28 DOSES
     Route: 048

REACTIONS (11)
  - Neonatal intestinal perforation [Unknown]
  - Necrotising colitis [Unknown]
  - Sepsis [Unknown]
  - Intraventricular haemorrhage [Unknown]
  - Bronchopulmonary dysplasia [Unknown]
  - Retinopathy of prematurity [Unknown]
  - Product use in unapproved indication [Unknown]
  - Off label use [Unknown]
  - Thrombocytopenia [Unknown]
  - Therapeutic response unexpected [Unknown]
  - Nephropathy toxic [Unknown]
